FAERS Safety Report 5647571-5 (Version None)
Quarter: 2008Q1

REPORT INFORMATION
  Report Type: 
  Country: None (occurrence: None)
  Receive Date: 20080303
  Receipt Date: 20080222
  Transmission Date: 20080703
  Serious: Yes (Hospitalization)
  Sender: FDA-Public Use
  Company Number: FR-ABBOTT-08P-056-0439459-00

PATIENT
  Sex: Male

DRUGS (8)
  1. DEPAKOTE [Suspect]
     Indication: BIPOLAR DISORDER
     Route: 048
  2. SEROPLEX FILM-COATED TABLETS [Suspect]
     Indication: BIPOLAR DISORDER
     Route: 048
     Dates: end: 20070404
  3. NITROGLYCERIN [Suspect]
     Indication: CORONARY ARTERY INSUFFICIENCY
     Route: 062
     Dates: end: 20070415
  4. ALIMEMAZINE TARTRATE [Suspect]
     Indication: BIPOLAR DISORDER
     Route: 048
  5. ATENOLOL [Suspect]
     Indication: HYPERTENSION
     Route: 048
  6. KARDEGIC [Concomitant]
     Indication: DRUG USE FOR UNKNOWN INDICATION
     Route: 048
  7. CLONAZEPAM [Concomitant]
     Indication: DRUG USE FOR UNKNOWN INDICATION
     Route: 065
  8. OLANZAPINE [Concomitant]
     Indication: DRUG USE FOR UNKNOWN INDICATION
     Dates: start: 20070401

REACTIONS (6)
  - FACIAL BONES FRACTURE [None]
  - FALL [None]
  - MALAISE [None]
  - OBSESSIVE-COMPULSIVE DISORDER [None]
  - ORTHOSTATIC HYPOTENSION [None]
  - PSEUDODEMENTIA [None]
